FAERS Safety Report 9197379 (Version 3)
Quarter: 2014Q3

REPORT INFORMATION
  Report Type: Spontaneous
  Country: US (occurrence: US)
  Receive Date: 20130328
  Receipt Date: 20140813
  Transmission Date: 20150326
  Serious: No
  Sender: FDA-Public Use
  Company Number: US-ASTRAZENECA-2010SE41293

PATIENT
  Age: 80 Year
  Sex: Male
  Weight: 123.4 kg

DRUGS (3)
  1. CRESTOR [Suspect]
     Active Substance: ROSUVASTATIN CALCIUM
     Indication: HYPERCHOLESTEROLAEMIA
     Route: 048
     Dates: start: 1999
  2. TYPE OF GYCERIDE [Concomitant]
     Indication: CARDIAC DISORDER
  3. TRICOR [Concomitant]
     Active Substance: FENOFIBRATE

REACTIONS (6)
  - Cardiac disorder [Unknown]
  - Hypoacusis [Unknown]
  - Muscular weakness [Not Recovered/Not Resolved]
  - Asthenia [Not Recovered/Not Resolved]
  - Drug dose omission [Not Recovered/Not Resolved]
  - Diabetes mellitus [Unknown]

NARRATIVE: CASE EVENT DATE: 2007
